FAERS Safety Report 6551800-3 (Version None)
Quarter: 2010Q1

REPORT INFORMATION
  Report Type: 
  Country: None (occurrence: None)
  Receive Date: 20100120
  Receipt Date: 20100111
  Transmission Date: 20100710
  Serious: Yes (Other)
  Sender: FDA-Public Use
  Company Number: 2010GR_BP0097

PATIENT
  Age: 81 Year
  Sex: Male

DRUGS (8)
  1. FINASTERIDE [Suspect]
     Indication: PROSTATOMEGALY
     Dosage: 10 MG (10 MG,1 IN 1 D) ORAL
     Route: 048
     Dates: start: 20091101
  2. ASPIRIN [Concomitant]
  3. FUROSEMIDE (FRUOSEMIDE) [Concomitant]
  4. LANSOPRAZOLE [Concomitant]
  5. MADOPAR (BENSERAZIDE HYDROCHLORIDE, LEVODOPA) [Concomitant]
  6. NEUPRO [Concomitant]
  7. RAMIPRIL [Concomitant]
  8. SIMVASTATIN [Concomitant]

REACTIONS (3)
  - AMNESIA [None]
  - COORDINATION ABNORMAL [None]
  - HALLUCINATION [None]
